FAERS Safety Report 7196556 (Version 3)
Quarter: 2012Q4

REPORT INFORMATION
  Report Type: 
  Country: US (occurrence: US)
  Receive Date: 20091202
  Receipt Date: 20120904
  Transmission Date: 20130627
  Serious: No
  Sender: FDA-Public Use
  Company Number: US-AMGEN-KDL318172

PATIENT
  Age: 66 Year
  Sex: Female

DRUGS (8)
  1. ENBREL [Suspect]
     Indication: RHEUMATOID ARTHRITIS
     Dosage: 50 mg, qwk
     Route: 058
     Dates: start: 200809
  2. ENBREL [Suspect]
     Dosage: 50 mg, qwk
  3. METHOTREXATE [Concomitant]
     Indication: RHEUMATOID ARTHRITIS
     Dosage: 22 mg, qwk
     Dates: start: 20080301
  4. METHOTREXATE [Concomitant]
     Dosage: 10 mg, UNK
     Route: 048
  5. PREDNISONE [Concomitant]
     Dosage: 5 mg, qd
  6. OMEPRAZOLE [Concomitant]
     Dosage: UNK UNK, UNK
  7. FOLIC ACID [Concomitant]
     Dosage: 1 mg, qd
     Route: 048
  8. FOSAMAX [Concomitant]
     Indication: OSTEOPOROSIS
     Dosage: 70 mg, UNK
     Route: 048

REACTIONS (11)
  - Rheumatoid arthritis [Not Recovered/Not Resolved]
  - Blister [Not Recovered/Not Resolved]
  - Nasopharyngitis [Not Recovered/Not Resolved]
  - Injection site erythema [Recovered/Resolved]
  - Injection site pruritus [Not Recovered/Not Resolved]
  - Injection site swelling [Unknown]
  - Injection site pain [Not Recovered/Not Resolved]
  - Injection site induration [Unknown]
  - Injection site reaction [Recovered/Resolved]
  - Rash erythematous [Not Recovered/Not Resolved]
  - Injection site rash [Recovered/Resolved]
